FAERS Safety Report 22331757 (Version 1)
Quarter: 2023Q2

REPORT INFORMATION
  Report Type: Spontaneous
  Country: GB (occurrence: GB)
  Receive Date: 20230517
  Receipt Date: 20230517
  Transmission Date: 20230722
  Serious: Yes (Other)
  Sender: FDA-Public Use
  Company Number: None

PATIENT
  Age: 74 Year
  Sex: Male
  Weight: 66 kg

DRUGS (3)
  1. ATORVASTATIN [Suspect]
     Active Substance: ATORVASTATIN
     Indication: Ill-defined disorder
     Dosage: TAKE ONE DAILY
     Dates: start: 20230322
  2. ATORVASTATIN [Suspect]
     Active Substance: ATORVASTATIN
     Dates: start: 20230419
  3. TIMOLOL [Concomitant]
     Active Substance: TIMOLOL
     Indication: Ill-defined disorder
     Dosage: ONE DROP TO BE USED EACH DAY IN THE AFFECTED EY...
     Dates: start: 20230201

REACTIONS (1)
  - Constipation [Recovered/Resolved]

NARRATIVE: CASE EVENT DATE: 20230419
